FAERS Safety Report 19832481 (Version 1)
Quarter: 2021Q3

REPORT INFORMATION
  Report Type: Spontaneous
  Country: US (occurrence: US)
  Receive Date: 20210914
  Receipt Date: 20210914
  Transmission Date: 20211014
  Serious: Yes (Other)
  Sender: FDA-Public Use
  Company Number: US-AMGEN-USASP2021136155

PATIENT
  Age: 68 Year
  Sex: Female

DRUGS (7)
  1. PREDNISONE. [Concomitant]
     Active Substance: PREDNISONE
  2. VINCRISTINE [Concomitant]
     Active Substance: VINCRISTINE
  3. IBRUTINIB [Concomitant]
     Active Substance: IBRUTINIB
  4. IDELALISIB [Concomitant]
     Active Substance: IDELALISIB
  5. CYCLOPHOSPHAMIDE. [Concomitant]
     Active Substance: CYCLOPHOSPHAMIDE
  6. DOXORUBICIN [Concomitant]
     Active Substance: DOXORUBICIN
  7. RITUXIMAB. [Suspect]
     Active Substance: RITUXIMAB
     Indication: SPLENIC MARGINAL ZONE LYMPHOMA
     Dosage: UNK
     Route: 065

REACTIONS (1)
  - Splenic marginal zone lymphoma recurrent [Unknown]
